FAERS Safety Report 20364310 (Version 1)
Quarter: 2022Q1

REPORT INFORMATION
  Report Type: Spontaneous
  Country: US (occurrence: None)
  Receive Date: 20220121
  Receipt Date: 20220121
  Transmission Date: 20220423
  Serious: Yes (unspecified)
  Sender: FDA-Public Use
  Company Number: None

PATIENT
  Age: 67 Year
  Sex: Female
  Weight: 83.91 kg

DRUGS (3)
  1. TRUXIMA [Suspect]
     Active Substance: RITUXIMAB-ABBS
     Dosage: FREQUENCY : EVERY THREE WEEKS;?
     Dates: start: 20220118
  2. TRUXIMA [Suspect]
     Active Substance: RITUXIMAB-ABBS
  3. ALLOPURINOL [Concomitant]
     Active Substance: ALLOPURINOL
     Indication: Chronic lymphocytic leukaemia

REACTIONS (4)
  - Flushing [None]
  - Palpitations [None]
  - Hypotension [None]
  - Electrocardiogram change [None]

NARRATIVE: CASE EVENT DATE: 20220118
